FAERS Safety Report 18425296 (Version 1)
Quarter: 2020Q4

REPORT INFORMATION
  Report Type: Report from Study
  Country: DK (occurrence: DK)
  Receive Date: 20201026
  Receipt Date: 20201026
  Transmission Date: 20210114
  Serious: Yes (Death)
  Sender: FDA-Public Use
  Company Number: DK-PFIZER INC-2020410873

PATIENT

DRUGS (4)
  1. BICNU [Suspect]
     Active Substance: CARMUSTINE
     Indication: LYMPHOMA
     Dosage: 300 MG/M2, D1
  2. CYTARABINE. [Suspect]
     Active Substance: CYTARABINE
     Indication: LYMPHOMA
     Dosage: 400 MG/M2, 1X/DAY (24 H, D 2-5)
  3. MELPHALAN. [Suspect]
     Active Substance: MELPHALAN
     Indication: LYMPHOMA
     Dosage: 140 MG/M2, D 6
  4. ETOPOSIDE. [Suspect]
     Active Substance: ETOPOSIDE
     Indication: LYMPHOMA
     Dosage: 200 MG/M2, D 2-5

REACTIONS (1)
  - Transplant failure [Fatal]
